FAERS Safety Report 11797580 (Version 2)
Quarter: 2016Q2

REPORT INFORMATION
  Report Type: Spontaneous
  Country: GB (occurrence: GB)
  Receive Date: 20151203
  Receipt Date: 20160418
  Transmission Date: 20160815
  Serious: Yes (Other)
  Sender: FDA-Public Use
  Company Number: GB-SA-2015SA180300

PATIENT
  Age: 52 Year
  Sex: Male

DRUGS (17)
  1. CO-AMOXICLAV [Concomitant]
     Active Substance: AMOXICILLIN\CLAVULANIC ACID
     Dosage: 625MG ORAL TDS
     Dates: start: 20140418, end: 20140423
  2. PARACETAMOL [Suspect]
     Active Substance: ACETAMINOPHEN
     Route: 065
     Dates: start: 20140510, end: 20140521
  3. ASPIRIN. [Suspect]
     Active Substance: ASPIRIN
     Dosage: DOSE IS 75 MGX48
     Route: 065
  4. ANADIN [Suspect]
     Active Substance: IBUPROFEN
     Dosage: DOSE IS 200 MGX 16
     Route: 065
  5. CODEINE PHOSPHATE [Concomitant]
     Active Substance: CODEINE PHOSPHATE
     Dates: start: 20140416
  6. TRAMADOL. [Concomitant]
     Active Substance: TRAMADOL
     Dates: start: 20140416
  7. BISOPROLOL [Suspect]
     Active Substance: BISOPROLOL
     Dosage: DOSE IS 2.5 MGX16
     Route: 065
  8. CLOPIDOGREL BISULFATE. [Suspect]
     Active Substance: CLOPIDOGREL BISULFATE
     Route: 065
     Dates: start: 20131008
  9. GLYCERYL TRINITRATE [Concomitant]
     Active Substance: NITROGLYCERIN
     Dates: start: 20131008
  10. CO-AMOXICLAV [Concomitant]
     Active Substance: AMOXICILLIN\CLAVULANIC ACID
     Dosage: 1200MG IV TDS
     Dates: start: 20140416, end: 20140418
  11. GLUCAGON. [Concomitant]
     Active Substance: GLUCAGON
     Dates: start: 20141201, end: 20141201
  12. AMLODIPINE [Suspect]
     Active Substance: AMLODIPINE BESYLATE
     Dosage: DOSE IS 10 MGX50
     Route: 065
  13. FLUOXETINE [Suspect]
     Active Substance: FLUOXETINE HYDROCHLORIDE
     Dosage: DOSE IS 20 MGX40
     Route: 065
  14. ATORVASTATIN [Concomitant]
     Active Substance: ATORVASTATIN
     Dates: start: 20131008, end: 20131219
  15. IBUPROFEN. [Concomitant]
     Active Substance: IBUPROFEN
     Dates: start: 20141119
  16. RAMIPRIL. [Suspect]
     Active Substance: RAMIPRIL
     Dosage: DOSE TAKEN WAS 2.5 MGX 56
     Route: 065
  17. ATORVASTATIN [Concomitant]
     Active Substance: ATORVASTATIN
     Dates: start: 20140110, end: 20140330

REACTIONS (3)
  - Suicide attempt [Unknown]
  - Intentional overdose [Unknown]
  - Depressed mood [Not Recovered/Not Resolved]
